FAERS Safety Report 4368035-5 (Version None)
Quarter: 2004Q2

REPORT INFORMATION
  Report Type: 
  Country: None (occurrence: None)
  Receive Date: 20040526
  Receipt Date: 20030904
  Transmission Date: 20050107
  Serious: Yes (Other)
  Sender: FDA-Public Use
  Company Number: M2003.6026

PATIENT
  Age: 47 Year
  Sex: Male
  Weight: 99.7913 kg

DRUGS (5)
  1. TRAZODONE UNK STRENGTH, GENEVA MANUFACTURER [Suspect]
     Indication: INSOMNIA
     Dosage: 250MG HS
  2. PROZAC [Concomitant]
  3. KLONOPIN [Concomitant]
  4. ZYPREXA [Concomitant]
  5. FLEXERIL [Concomitant]

REACTIONS (4)
  - ATAXIA [None]
  - DISTURBANCE IN ATTENTION [None]
  - MEMORY IMPAIRMENT [None]
  - STUPOR [None]
